FAERS Safety Report 15148803 (Version 3)
Quarter: 2024Q4

REPORT INFORMATION
  Report Type: Report from Study
  Country: FR (occurrence: FR)
  Receive Date: 20180716
  Receipt Date: 20241220
  Transmission Date: 20250115
  Serious: Yes (Congenital Anomaly, Other)
  Sender: MYLAN
  Company Number: FR-MYLANLABS-2018M1051308

PATIENT
  Sex: Female

DRUGS (1)
  1. TAMOXIFEN [Suspect]
     Active Substance: TAMOXIFEN
     Indication: Breast cancer
     Dosage: UNK
     Route: 064

REACTIONS (2)
  - Foetal exposure during pregnancy [Recovered/Resolved]
  - Enlarged clitoris [Not Recovered/Not Resolved]
